FAERS Safety Report 4534080-X (Version None)
Quarter: 2004Q4

REPORT INFORMATION
  Report Type: 
  Country: None (occurrence: None)
  Receive Date: 20041222
  Receipt Date: 20041210
  Transmission Date: 20050328
  Serious: Yes (Life-Threatening, Hospitalization, Other)
  Sender: FDA-Public Use
  Company Number: IT-JNJFOC-20041202887

PATIENT
  Sex: Male

DRUGS (3)
  1. REMICADE [Suspect]
     Indication: PSORIASIS
     Route: 042
  2. TRIMETON [Concomitant]
     Indication: PROPHYLAXIS
     Route: 042
  3. METHOTREXATE [Concomitant]
     Indication: PSORIASIS
     Route: 030

REACTIONS (2)
  - LEGIONELLA INFECTION [None]
  - SEPSIS [None]
